FAERS Safety Report 8862380 (Version 1)
Quarter: 2012Q4

REPORT INFORMATION
  Report Type: 
  Country: DE (occurrence: DE)
  Receive Date: 20121026
  Receipt Date: 20121026
  Transmission Date: 20130627
  Serious: Yes (Other)
  Sender: FDA-Public Use
  Company Number: PHHY2012DE095393

PATIENT
  Age: 72 Year
  Sex: Male

DRUGS (2)
  1. EXELON PATCH [Suspect]
     Indication: DEMENTIA
     Dosage: 4.6 mg, UNK
     Route: 062
     Dates: start: 201108, end: 201205
  2. EXELON PATCH [Suspect]
     Dosage: 9.5 mg, UNK
     Route: 062
     Dates: start: 201205

REACTIONS (5)
  - Herpes zoster [Recovered/Resolved]
  - Head injury [Recovered/Resolved]
  - Laceration [Recovered/Resolved]
  - Fall [Recovered/Resolved]
  - Blood pressure fluctuation [Recovered/Resolved]
